FAERS Safety Report 10159859 (Version 3)
Quarter: 2014Q2

REPORT INFORMATION
  Report Type: Spontaneous
  Country: US (occurrence: US)
  Receive Date: 20140508
  Receipt Date: 20140613
  Transmission Date: 20141212
  Serious: Yes (Hospitalization, Other)
  Sender: FDA-Public Use
  Company Number: US-009507513-1405USA004180

PATIENT
  Age: 57 Year
  Sex: Male

DRUGS (1)
  1. PEGINTRON [Suspect]
     Indication: CHRONIC HEPATITIS C
     Dosage: 120 MG, QW
     Route: 058
     Dates: start: 20140224, end: 2014

REACTIONS (3)
  - Renal failure [Unknown]
  - Cardiac failure [Unknown]
  - Hypersensitivity [Unknown]
